FAERS Safety Report 4880630-3 (Version None)
Quarter: 2006Q1

REPORT INFORMATION
  Report Type: 
  Country: None (occurrence: None)
  Receive Date: 20060113
  Receipt Date: 20060106
  Transmission Date: 20060701
  Serious: Yes (Hospitalization, Disabling)
  Sender: FDA-Public Use
  Company Number: US-MERCK-0601USA01305

PATIENT
  Age: 61 Year
  Sex: Male
  Weight: 95 kg

DRUGS (4)
  1. VIOXX [Suspect]
     Indication: ARTHRITIS
     Route: 048
     Dates: start: 20000401, end: 20000801
  2. VIOXX [Suspect]
     Route: 048
     Dates: start: 20030901, end: 20031201
  3. VIOXX [Suspect]
     Indication: PAIN
     Route: 048
     Dates: start: 20000401, end: 20000801
  4. VIOXX [Suspect]
     Route: 048
     Dates: start: 20030901, end: 20031201

REACTIONS (3)
  - BLOOD GLUCOSE ABNORMAL [None]
  - CARDIAC DISORDER [None]
  - MYOCARDIAL INFARCTION [None]
